FAERS Safety Report 18240625 (Version 1)
Quarter: 2020Q3

REPORT INFORMATION
  Report Type: Spontaneous
  Country: US (occurrence: US)
  Receive Date: 20200908
  Receipt Date: 20200908
  Transmission Date: 20201103
  Serious: Yes (Other)
  Sender: FDA-Public Use
  Company Number: US-ACCORD-199668

PATIENT
  Age: 66 Year
  Sex: Male

DRUGS (3)
  1. OXALIPLATIN. [Suspect]
     Active Substance: OXALIPLATIN
     Indication: SIGNET-RING CELL CARCINOMA
     Dosage: 85 MG/M2 IV ON DAY 1
     Route: 042
  2. FLUOROURACIL. [Suspect]
     Active Substance: FLUOROURACIL
     Indication: SIGNET-RING CELL CARCINOMA
     Dosage: 400 MG/M2 IV BOLUS ON DAY 1,?5FU IV WITH A TOTAL DOSE OF 2,400 MG/M2
     Route: 040
  3. FOLINIC ACID [Suspect]
     Active Substance: LEUCOVORIN
     Indication: SIGNET-RING CELL CARCINOMA
     Dosage: 400 MG/M2 IV ON DAY 1
     Route: 042

REACTIONS (4)
  - Nausea [Unknown]
  - Neuropathy peripheral [Unknown]
  - Vomiting [Unknown]
  - Off label use [Unknown]
